FAERS Safety Report 24245312 (Version 1)
Quarter: 2024Q3

REPORT INFORMATION
  Report Type: Spontaneous
  Country: CN (occurrence: None)
  Receive Date: 20240824
  Receipt Date: 20240824
  Transmission Date: 20241017
  Serious: Yes (Hospitalization)
  Sender: ASTRAZENECA
  Company Number: 2024A187622

PATIENT
  Age: 31 Year
  Sex: Male

DRUGS (8)
  1. GOSERELIN [Suspect]
     Active Substance: GOSERELIN
     Indication: Breast cancer
     Route: 059
     Dates: start: 20240603, end: 20240610
  2. GOSERELIN [Suspect]
     Active Substance: GOSERELIN
     Indication: Benign bone neoplasm
     Route: 059
     Dates: start: 20240603, end: 20240610
  3. KISQALI [Suspect]
     Active Substance: RIBOCICLIB
     Indication: Breast cancer
     Route: 048
     Dates: start: 20240603, end: 20240610
  4. KISQALI [Suspect]
     Active Substance: RIBOCICLIB
     Indication: Benign bone neoplasm
     Route: 048
     Dates: start: 20240603, end: 20240610
  5. XGEVA [Suspect]
     Active Substance: DENOSUMAB
     Indication: Breast cancer
     Route: 059
     Dates: start: 20240603, end: 20240610
  6. XGEVA [Suspect]
     Active Substance: DENOSUMAB
     Indication: Benign bone neoplasm
     Route: 059
     Dates: start: 20240603, end: 20240610
  7. AROMASIN [Suspect]
     Active Substance: EXEMESTANE
     Indication: Breast cancer
     Route: 048
     Dates: start: 20240603, end: 20240610
  8. AROMASIN [Suspect]
     Active Substance: EXEMESTANE
     Indication: Benign bone neoplasm
     Route: 048
     Dates: start: 20240603, end: 20240610

REACTIONS (1)
  - Myelosuppression [Recovering/Resolving]

NARRATIVE: CASE EVENT DATE: 20240701
